FAERS Safety Report 24264570 (Version 2)
Quarter: 2024Q3

REPORT INFORMATION
  Report Type: Report from Study
  Country: GB (occurrence: GB)
  Receive Date: 20240829
  Receipt Date: 20240904
  Transmission Date: 20241017
  Serious: Yes (Other)
  Sender: ABBVIE
  Company Number: GB-ABBVIE-5899415

PATIENT
  Age: 73 Year
  Sex: Male

DRUGS (9)
  1. CARBIDOPA\LEVODOPA [Suspect]
     Active Substance: CARBIDOPA\LEVODOPA
     Indication: Parkinson^s disease
     Dosage: 20MG/5MG, MD: 9.8, CR:2.4, ED1.0
     Route: 050
  2. CARBIDOPA\LEVODOPA [Suspect]
     Active Substance: CARBIDOPA\LEVODOPA
  3. POLYETHYLENE GLYCOL 3350\POTASSIUM CHLORIDE\SODIUM BICARBONATE\SODIUM [Concomitant]
     Active Substance: POLYETHYLENE GLYCOL 3350\POTASSIUM CHLORIDE\SODIUM BICARBONATE\SODIUM CHLORIDE
     Indication: Constipation
     Dosage: 1 TO 6 SACHETS
  4. MELATONIN [Concomitant]
     Active Substance: MELATONIN
     Indication: Product used for unknown indication
     Dosage: FREQUENCY TEXT: X3 AT NIGHT
  5. Ontilyv [Concomitant]
     Indication: Product used for unknown indication
     Dosage: FREQUENCY TEXT: AT NIGHT
  6. ESCITALOPRAM [Concomitant]
     Active Substance: ESCITALOPRAM OXALATE
     Indication: Product used for unknown indication
     Dosage: FREQUENCY TEXT: AT NIGHT
  7. GABAPENTIN [Concomitant]
     Active Substance: GABAPENTIN
     Indication: Product used for unknown indication
     Dosage: TIME INTERVAL: 0.33333333 DAYS
  8. BENSERAZIDE HYDROCHLORIDE\LEVODOPA [Concomitant]
     Active Substance: BENSERAZIDE HYDROCHLORIDE\LEVODOPA
     Indication: Product used for unknown indication
     Dosage: 25/100MGS MR X2?FREQUENCY TEXT: @22.00
  9. CLONAZEPAM [Concomitant]
     Active Substance: CLONAZEPAM
     Indication: Product used for unknown indication
     Dosage: 500MCGS X3?FREQUENCY TEXT: OCCASIONAL 4 TABLETS IF WAKES AT NIGHT

REACTIONS (26)
  - Macular degeneration [Unknown]
  - Movement disorder [Unknown]
  - Visual impairment [Unknown]
  - Groin pain [Unknown]
  - Parkinson^s disease [Unknown]
  - Communication disorder [Unknown]
  - Gait disturbance [Unknown]
  - Depressed mood [Unknown]
  - Dystonia [Unknown]
  - Muscle rigidity [Unknown]
  - Contusion [Unknown]
  - Freezing phenomenon [Unknown]
  - Speech disorder [Unknown]
  - Fall [Unknown]
  - Limb injury [Unknown]
  - Pain [Unknown]
  - Tearfulness [Unknown]
  - Skin laceration [Unknown]
  - Weight decreased [Unknown]
  - Abnormal dreams [Unknown]
  - Dyskinesia [Unknown]
  - Hallucination, visual [Unknown]
  - Confusional state [Unknown]
  - Constipation [Unknown]
  - Foot deformity [Unknown]
  - Mobility decreased [Unknown]

NARRATIVE: CASE EVENT DATE: 20240101
